FAERS Safety Report 7587069-0 (Version None)
Quarter: 2011Q3

REPORT INFORMATION
  Report Type: 
  Country: None (occurrence: None)
  Receive Date: 20110701
  Receipt Date: 20110620
  Transmission Date: 20111222
  Serious: Yes (Hospitalization, Other)
  Sender: FDA-Public Use
  Company Number: PHHY2011FR24459

PATIENT
  Sex: Male

DRUGS (24)
  1. LORAZEPAM [Concomitant]
     Dosage: 1 MG, HALF TABLET IN  MORNING AND EVENING
  2. LORAZEPAM [Concomitant]
     Dosage: 1 MG, UNK AT ONE TABLET IN THE MORNING
  3. PENILEX [Concomitant]
     Dosage: UNK UKN, UNK
  4. PRAMIPEXOLE DIHYCHLLORIDE [Suspect]
     Dosage: 0.5 DF, UNK
     Dates: start: 20101218
  5. STALEVO 100 [Suspect]
     Dosage: 50 MG, BID (AT 09:30 AM 06:30 PM)
  6. AZILECT [Suspect]
     Indication: PARKINSON'S DISEASE
     Dosage: UNK UKN, UNK
     Dates: start: 20080101
  7. PRAMIPEXOLE DIHYCHLLORIDE [Suspect]
     Dosage: 0.7 MG,AT 1 TABLET 3 TIMES PER DAY
     Dates: start: 20081013
  8. STALEVO 100 [Suspect]
     Indication: PARKINSON'S DISEASE
     Dosage: 150 MG, BID (AT 06:30 AM AND 03:30 PM)
     Dates: start: 20080101
  9. STALEVO 100 [Suspect]
     Dosage: 150 MG, BID (AT 09:30 AM 06:30 PM)
  10. STALEVO 100 [Suspect]
     Dosage: 150 MG, QD ONCE PER DAY (AT 06:30 AM)
  11. STALEVO 100 [Suspect]
     Dosage: 150 MG ONCE PER DAY AT 06:45 AM
     Dates: start: 20101218
  12. REQUIP [Suspect]
     Indication: PARKINSON'S DISEASE
     Dosage: UNK UKN, UNK
     Dates: start: 20080101
  13. PRAMIPEXOLE DIHYCHLLORIDE [Suspect]
     Indication: PARKINSON'S DISEASE
     Dosage: 0.18 MG, ONE TABLET THRICE A DAY
  14. STALEVO 100 [Suspect]
     Dosage: 100 MG, TID AT 12:30 PM, 03:45 PM AND 07:00 PM
  15. PRAMIPEXOLE DIHYCHLLORIDE [Suspect]
     Dosage: 0.7 MG, BID HALF TABLET TWO TIME A DAY
  16. SINEMET [Concomitant]
     Dosage: 1 DF, AT BED TIME
  17. MADOPAR [Concomitant]
     Dosage: 125 MG,  1 TO 1.5 TABLET IN THE CASE OF BLOCKING.
  18. STALEVO 100 [Suspect]
     Dosage: 100 MG, BID
     Dates: start: 20081013
  19. PRAMIPEXOLE DIHYCHLLORIDE [Suspect]
     Dosage: 0.18 MG, 0.5 TABLET AT 06:30 AM AND 1 TABLET AT 12:30 PM
     Dates: start: 20081013
  20. STALEVO 100 [Suspect]
     Dosage: 50 MG, TID (AT 09:30 AM AND 12:30 PM AND 06:30 PM)
  21. STALEVO 100 [Suspect]
     Dosage: 50 MG, BID (AT 09:30 AM 06:30 PM)
     Dates: start: 20081013
  22. STALEVO 100 [Suspect]
     Dosage: 1 DF 1 TABLET OF 50 OR 100 MG AT 03:30 PM
  23. STALEVO 100 [Suspect]
     Dosage: 50 MG, ONCE PER DAY AT 09.45 AM
  24. PRAMIPEXOLE DIHYCHLLORIDE [Suspect]
     Dosage: 0.7 MG, AT 0.5 TABLET THE FIRST EVENING, THEN AT 0.5 TABLET MORNING AND EVENING

REACTIONS (15)
  - FALL [None]
  - EMOTIONAL DISTRESS [None]
  - DEMENTIA [None]
  - HALLUCINATION [None]
  - BALANCE DISORDER [None]
  - MIDDLE INSOMNIA [None]
  - FRUSTRATION [None]
  - PERSONALITY CHANGE [None]
  - PARKINSON'S DISEASE [None]
  - HYPERSEXUALITY [None]
  - DISEASE PROGRESSION [None]
  - DYSKINESIA [None]
  - FREEZING PHENOMENON [None]
  - ABNORMAL BEHAVIOUR [None]
  - LIBIDO INCREASED [None]
